FAERS Safety Report 19291871 (Version 5)
Quarter: 2021Q3

REPORT INFORMATION
  Report Type: Other
  Country: US (occurrence: US)
  Receive Date: 20210524
  Receipt Date: 20210913
  Transmission Date: 20211014
  Serious: Yes (Other)
  Sender: FDA-Public Use
  Company Number: US-ROCHE-2831739

PATIENT
  Age: 42 Year
  Sex: Male
  Weight: 68.1 kg

DRUGS (5)
  1. EVRYSDI [Suspect]
     Active Substance: RISDIPLAM
     Route: 048
     Dates: start: 202011
  2. COVID?19 VACCINE NOS. [Suspect]
     Active Substance: COVID-19 VACCINE NOS
     Indication: COVID-19 IMMUNISATION
     Route: 065
     Dates: start: 20210422
  3. HUMIRA [Concomitant]
     Active Substance: ADALIMUMAB
  4. ATIVAN [Concomitant]
     Active Substance: LORAZEPAM
  5. EVRYSDI [Suspect]
     Active Substance: RISDIPLAM
     Indication: SPINAL MUSCULAR ATROPHY
     Route: 048
     Dates: start: 20201203

REACTIONS (9)
  - Musculoskeletal chest pain [Not Recovered/Not Resolved]
  - Paraesthesia [Unknown]
  - Spondylitis [Unknown]
  - Pain [Unknown]
  - Feeling hot [Not Recovered/Not Resolved]
  - Pain [Not Recovered/Not Resolved]
  - Ankylosing spondylitis [Recovering/Resolving]
  - Mobility decreased [Unknown]
  - Asthenia [Recovering/Resolving]

NARRATIVE: CASE EVENT DATE: 20210224
